FAERS Safety Report 7701926-3 (Version None)
Quarter: 2011Q3

REPORT INFORMATION
  Report Type: 
  Country: None (occurrence: None)
  Receive Date: 20110822
  Receipt Date: 20110815
  Transmission Date: 20111222
  Serious: Yes (Other)
  Sender: FDA-Public Use
  Company Number: GB-PFIZER INC-2011187827

PATIENT
  Age: 73 Year
  Sex: Female

DRUGS (7)
  1. METRONIDAZOLE [Suspect]
     Indication: TOOTH INFECTION
     Dosage: 200 MG, 3X/DAY
     Route: 048
     Dates: start: 20080604, end: 20080606
  2. VITAMIN B1 TAB [Concomitant]
  3. CHROMIUM [Concomitant]
     Dosage: 200 UG, 1X/DAY
  4. METRONIDAZOLE [Suspect]
     Indication: TOOTH ABSCESS
  5. MENTHA ARVENSIS [Concomitant]
  6. VITAMIN B-12 [Concomitant]
  7. LEVOTHYROXINE SODIUM [Concomitant]
     Indication: HYPOTHYROIDISM

REACTIONS (20)
  - DIZZINESS [None]
  - RASH [None]
  - SLEEP DISORDER [None]
  - DECREASED APPETITE [None]
  - HYPOGLYCAEMIA [None]
  - PANIC ATTACK [None]
  - DEPRESSION [None]
  - SHOCK [None]
  - WEIGHT DECREASED [None]
  - MUSCULAR WEAKNESS [None]
  - LACRIMATION INCREASED [None]
  - COGNITIVE DISORDER [None]
  - FATIGUE [None]
  - NOCTURIA [None]
  - CONFUSIONAL STATE [None]
  - HEADACHE [None]
  - NIGHT SWEATS [None]
  - HYPOAESTHESIA [None]
  - ABDOMINAL PAIN UPPER [None]
  - PARAESTHESIA [None]
